FAERS Safety Report 15109278 (Version 2)
Quarter: 2018Q3

REPORT INFORMATION
  Report Type: Spontaneous
  Country: AR (occurrence: AR)
  Receive Date: 20180705
  Receipt Date: 20180731
  Transmission Date: 20181010
  Serious: Yes (Other)
  Sender: FDA-Public Use
  Company Number: AR-BAYER-2016-131958

PATIENT
  Sex: Female

DRUGS (1)
  1. MIRENA [Suspect]
     Active Substance: LEVONORGESTREL
     Dosage: 20 MCG/24HR, CONT
     Route: 015
     Dates: start: 20160229, end: 20160612

REACTIONS (18)
  - Device dislocation [None]
  - Pelvic pain [Recovered/Resolved with Sequelae]
  - Infection [None]
  - Device physical property issue [None]
  - Feeling guilty [None]
  - Depressed mood [None]
  - Apathy [None]
  - Intestinal dilatation [None]
  - Pneumoperitoneum [None]
  - Pelvic discomfort [Recovered/Resolved with Sequelae]
  - Diarrhoea [None]
  - Oedema due to hepatic disease [None]
  - Pelvic fluid collection [None]
  - Cerebral disorder [None]
  - Suppressed lactation [None]
  - Hydrometra [None]
  - Emotional disorder [None]
  - Weight decreased [None]

NARRATIVE: CASE EVENT DATE: 20160304
